FAERS Safety Report 8797505 (Version 2)
Quarter: 2012Q4

REPORT INFORMATION
  Report Type: 
  Country: CA (occurrence: CA)
  Receive Date: 20120920
  Receipt Date: 20121009
  Transmission Date: 20130627
  Serious: Yes (Other)
  Sender: FDA-Public Use
  Company Number: PHHY2012CA064127

PATIENT
  Age: 39 Year
  Sex: Female

DRUGS (2)
  1. GILENYA [Suspect]
     Indication: RELAPSING-REMITTING MULTIPLE SCLEROSIS
     Dosage: 0.5 mg, QD
     Route: 048
     Dates: start: 20120723
  2. TOPAMAX [Concomitant]
     Dosage: 50 mg, BID
     Dates: start: 201208

REACTIONS (16)
  - Electrocardiogram Q wave abnormal [Unknown]
  - Epicondylitis [Unknown]
  - Sensation of heaviness [Unknown]
  - Tremor [Unknown]
  - Nasal congestion [Unknown]
  - Electrocardiogram repolarisation abnormality [Unknown]
  - Dysgeusia [Unknown]
  - Oropharyngeal pain [Unknown]
  - Dry eye [Unknown]
  - Electrocardiogram T wave inversion [Unknown]
  - Nausea [Recovering/Resolving]
  - Fatigue [Not Recovered/Not Resolved]
  - Visual field defect [Unknown]
  - Visual impairment [Unknown]
  - Nasopharyngitis [Unknown]
  - Sinusitis [Unknown]
